FAERS Safety Report 4304557-0 (Version None)
Quarter: 2004Q1

REPORT INFORMATION
  Report Type: 
  Country: None (occurrence: None)
  Receive Date: 20040226
  Receipt Date: 20040202
  Transmission Date: 20041129
  Serious: Yes (Disabling, Other)
  Sender: FDA-Public Use
  Company Number: 200411608GDDC

PATIENT
  Age: 62 Year
  Sex: Male

DRUGS (6)
  1. ARAVA [Suspect]
     Indication: RHEUMATOID ARTHRITIS
     Route: 048
     Dates: start: 20030501, end: 20040131
  2. ATACAND [Concomitant]
     Indication: HYPERTENSION
     Dates: start: 20030501
  3. WARFARIN [Concomitant]
     Indication: ATRIAL FIBRILLATION
     Route: 048
     Dates: start: 19980501
  4. MONODUR [Concomitant]
     Indication: MYOCARDIAL ISCHAEMIA
     Route: 048
     Dates: start: 19980501
  5. FRUSEMIDE [Concomitant]
     Indication: CARDIAC FAILURE CONGESTIVE
     Route: 048
     Dates: start: 19980101
  6. PREDNISOLONE [Concomitant]
     Indication: RHEUMATOID ARTHRITIS
     Route: 048
     Dates: start: 19980101

REACTIONS (6)
  - AMAUROSIS [None]
  - CATARACT [None]
  - EYE PAIN [None]
  - PHOTOPHOBIA [None]
  - PHOTOPSIA [None]
  - VISUAL ACUITY REDUCED [None]
